FAERS Safety Report 7220897-X (Version None)
Quarter: 2011Q1

REPORT INFORMATION
  Report Type: 
  Country: None (occurrence: None)
  Receive Date: 20110112
  Receipt Date: 20101012
  Transmission Date: 20110831
  Serious: No
  Sender: FDA-Public Use
  Company Number: A0886146A

PATIENT
  Sex: Male

DRUGS (2)
  1. UNKNOWN [Concomitant]
  2. JALYN [Suspect]
     Dosage: 1TAB PER DAY
     Route: 048

REACTIONS (1)
  - RASH [None]
